FAERS Safety Report 16739969 (Version 1)
Quarter: 2019Q3

REPORT INFORMATION
  Report Type: Other
  Country: GB (occurrence: GB)
  Receive Date: 20190826
  Receipt Date: 20190826
  Transmission Date: 20191005
  Serious: Yes (Life-Threatening, Hospitalization)
  Sender: FDA-Public Use
  Company Number: GB-MACLEODS PHARMACEUTICALS US LTD-MAC2019022700

PATIENT

DRUGS (1)
  1. SILDENAFIL. [Suspect]
     Active Substance: SILDENAFIL
     Indication: ERECTILE DYSFUNCTION
     Dosage: 50 MILLIGRAM
     Route: 048
     Dates: end: 20190730

REACTIONS (2)
  - Subarachnoid haemorrhage [Unknown]
  - Primary headache associated with sexual activity [Unknown]

NARRATIVE: CASE EVENT DATE: 20190729
